FAERS Safety Report 21152693 (Version 1)
Quarter: 2022Q3

REPORT INFORMATION
  Report Type: Spontaneous
  Country: US (occurrence: US)
  Receive Date: 20220730
  Receipt Date: 20220730
  Transmission Date: 20221027
  Serious: No
  Sender: FDA-Public Use
  Company Number: US-SANOFI-01201213

PATIENT
  Sex: Female

DRUGS (1)
  1. SELSUN BLUE 2-IN-1 [Suspect]
     Active Substance: SELENIUM SULFIDE
     Dosage: UNK
     Route: 065

REACTIONS (4)
  - Pruritus [Unknown]
  - Dandruff [Unknown]
  - Condition aggravated [Unknown]
  - Product odour abnormal [Unknown]
